FAERS Safety Report 5695194-4 (Version None)
Quarter: 2008Q2

REPORT INFORMATION
  Report Type: 
  Country: None (occurrence: None)
  Receive Date: 20080404
  Receipt Date: 20080326
  Transmission Date: 20081010
  Serious: Yes (Other)
  Sender: FDA-Public Use
  Company Number: DE-PFIZER INC-2008027406

PATIENT
  Age: 65 Year
  Sex: Male
  Weight: 74 kg

DRUGS (18)
  1. NEURONTIN [Suspect]
     Indication: BACK PAIN
     Route: 048
  2. METAMIZOLE SODIUM [Concomitant]
  3. DIGITOXIN INJ [Concomitant]
  4. METFORMIN HCL [Concomitant]
  5. PANTOZOL [Concomitant]
  6. CYNT [Concomitant]
  7. BLOPRESS [Concomitant]
  8. BISOPROLOL FUMARATE [Concomitant]
  9. TOREM [Concomitant]
  10. SPIRONOLACTONE [Concomitant]
  11. CLONIDINE HYDROCHLORIDE [Concomitant]
  12. SIMVASTATIN [Concomitant]
  13. THIOGAMMA [Concomitant]
  14. MAGNESIUM [Concomitant]
  15. STILNOX [Concomitant]
  16. DIAZEPAM [Concomitant]
  17. REMERGIL [Concomitant]
  18. INSULIN [Concomitant]

REACTIONS (6)
  - ARTHRALGIA [None]
  - DIABETES MELLITUS [None]
  - MUSCLE TWITCHING [None]
  - MYALGIA [None]
  - NERVOUSNESS [None]
  - WEIGHT INCREASED [None]
